FAERS Safety Report 12751025 (Version 2)
Quarter: 2016Q4

REPORT INFORMATION
  Report Type: Report from Study
  Country: CA (occurrence: CA)
  Receive Date: 20160915
  Receipt Date: 20161208
  Transmission Date: 20170207
  Serious: Yes (Other)
  Sender: FDA-Public Use
  Company Number: PHHY2016CA091817

PATIENT
  Age: 86 Year
  Sex: Female
  Weight: 45.81 kg

DRUGS (2)
  1. SANDOSTATIN LAR DEPOT [Suspect]
     Active Substance: OCTREOTIDE ACETATE
     Indication: CARCINOID SYNDROME
     Dosage: 30 MG, QMO( EVERY 4 WEEKS)
     Route: 030
     Dates: start: 20160708
  2. SANDOSTATIN [Suspect]
     Active Substance: OCTREOTIDE ACETATE
     Indication: CARCINOID TUMOUR
     Dosage: TEST DOSE, ONCE/SINGLE
     Route: 058
     Dates: start: 20160627, end: 20160627

REACTIONS (6)
  - Faeces discoloured [Unknown]
  - Blood pressure systolic increased [Unknown]
  - Blood glucose decreased [Unknown]
  - Abnormal faeces [Unknown]
  - Weight decreased [Unknown]
  - Diarrhoea [Not Recovered/Not Resolved]

NARRATIVE: CASE EVENT DATE: 2016
